FAERS Safety Report 8834694 (Version 2)
Quarter: 2012Q4

REPORT INFORMATION
  Report Type: 
  Country: JP (occurrence: JP)
  Receive Date: 20121010
  Receipt Date: 20121010
  Transmission Date: 20130627
  Serious: Yes (Hospitalization, Other)
  Sender: FDA-Public Use
  Company Number: JP-ROCHE-1076785

PATIENT
  Age: 82 Year
  Sex: Male

DRUGS (14)
  1. LUCENTIS [Suspect]
     Indication: AGE-RELATED MACULAR DEGENERATION
     Route: 050
     Dates: start: 20100422
  2. LUCENTIS [Suspect]
     Route: 050
     Dates: start: 20100527
  3. LUCENTIS [Suspect]
     Route: 050
     Dates: start: 20100624
  4. LUCENTIS [Suspect]
     Route: 050
     Dates: start: 20100921
  5. LUCENTIS [Suspect]
     Route: 050
     Dates: start: 20101019
  6. LUCENTIS [Suspect]
     Route: 050
     Dates: start: 20101116
  7. LUCENTIS [Suspect]
     Route: 050
     Dates: start: 20110512
  8. LUCENTIS [Suspect]
     Route: 050
     Dates: start: 20110616
  9. LUCENTIS [Suspect]
     Route: 050
     Dates: start: 20110714
  10. LUCENTIS [Suspect]
     Route: 050
     Dates: start: 20120124
  11. LUCENTIS [Suspect]
     Route: 050
     Dates: start: 20120228
  12. LUCENTIS [Suspect]
     Route: 050
     Dates: start: 20120529
  13. GATIFLO [Concomitant]
     Route: 048
     Dates: start: 20120529
  14. CEFZON [Concomitant]
     Route: 048
     Dates: start: 20120529, end: 20120531

REACTIONS (10)
  - Endophthalmitis [Recovered/Resolved]
  - Visual acuity reduced [Unknown]
  - Macular oedema [Unknown]
  - Conjunctival haemorrhage [Unknown]
  - Detachment of retinal pigment epithelium [Unknown]
  - Eye pain [Unknown]
  - Eye inflammation [Unknown]
  - Hypopyon [Unknown]
  - Ocular hyperaemia [Unknown]
  - Vitreous opacities [Unknown]
